FAERS Safety Report 9279620 (Version 2)
Quarter: 2013Q3

REPORT INFORMATION
  Report Type: Report from Study
  Country: JP (occurrence: JP)
  Receive Date: 20130509
  Receipt Date: 20130710
  Transmission Date: 20140515
  Serious: Yes (Other)
  Sender: FDA-Public Use
  Company Number: JP-ROCHE-1221832

PATIENT
  Age: 0 Year
  Sex: Male

DRUGS (2)
  1. BEVACIZUMAB [Suspect]
     Indication: RETINOPATHY OF PREMATURITY
     Dosage: SINGLE INJECTION
     Route: 031
  2. BEVACIZUMAB [Suspect]
     Indication: OFF LABEL USE

REACTIONS (1)
  - Retinal detachment [Recovered/Resolved]
